FAERS Safety Report 8281250-3 (Version None)
Quarter: 2012Q2

REPORT INFORMATION
  Report Type: 
  Country: None (occurrence: None)
  Receive Date: 20120413
  Receipt Date: 20120403
  Transmission Date: 20120825
  Serious: Yes (Other)
  Sender: FDA-Public Use
  Company Number: GB-BRISTOL-MYERS SQUIBB COMPANY-16502205

PATIENT
  Age: 67 Year
  Sex: Male

DRUGS (4)
  1. AMOXICILLIN [Suspect]
  2. BLINDED: SAXAGLIPTIN [Suspect]
     Indication: TYPE 2 DIABETES MELLITUS
     Dates: start: 20101006
  3. ASPIRIN [Concomitant]
     Dosage: 1DF}100MG
  4. PLACEBO [Suspect]
     Indication: TYPE 2 DIABETES MELLITUS

REACTIONS (2)
  - JAUNDICE [None]
  - TRANSAMINASES INCREASED [None]
